FAERS Safety Report 20199176 (Version 1)
Quarter: 2021Q4

REPORT INFORMATION
  Report Type: Spontaneous
  Country: US (occurrence: None)
  Receive Date: 20211216
  Receipt Date: 20211216
  Transmission Date: 20220303
  Serious: Yes (Hospitalization)
  Sender: FDA-Public Use
  Company Number: None

PATIENT
  Sex: Male

DRUGS (1)
  1. CAPECITABINE [Suspect]
     Active Substance: CAPECITABINE
     Indication: Rectosigmoid cancer
     Dosage: 500MG 4 TABLETS TWICE DAILY FOR 2 WEEKS, THEN OFF 7 DAYS
     Route: 048
     Dates: start: 20211009

REACTIONS (1)
  - Localised infection [None]
